FAERS Safety Report 7726877-X (Version None)
Quarter: 2011Q3

REPORT INFORMATION
  Report Type: 
  Country: None (occurrence: None)
  Receive Date: 20110902
  Receipt Date: 20110829
  Transmission Date: 20111222
  Serious: Yes (Hospitalization)
  Sender: FDA-Public Use
  Company Number: FR-MERCK-1108FRA00116

PATIENT
  Age: 62 Year
  Sex: Male

DRUGS (3)
  1. TAMSULOSIN HYDROCHLORIDE [Concomitant]
     Indication: PROSTATIC ADENOMA
     Route: 048
  2. VALSARTAN [Concomitant]
     Indication: HYPERTENSION
     Route: 048
  3. JANUMET [Suspect]
     Route: 048
     Dates: start: 20100101, end: 20110101

REACTIONS (3)
  - ASCITES [None]
  - PANCREATIC CARCINOMA [None]
  - METASTASES TO PERITONEUM [None]
